FAERS Safety Report 8354483-5 (Version None)
Quarter: 2012Q2

REPORT INFORMATION
  Report Type: 
  Country: None (occurrence: None)
  Receive Date: 20120511
  Receipt Date: 20120501
  Transmission Date: 20120825
  Serious: Yes (Hospitalization)
  Sender: FDA-Public Use
  Company Number: US-ELI_LILLY_AND_COMPANY-US201205002036

PATIENT
  Sex: Female

DRUGS (6)
  1. HUMULIN R [Suspect]
     Indication: TYPE 2 DIABETES MELLITUS
     Dosage: UNK
     Dates: start: 20110501, end: 20120401
  2. LANTUS [Concomitant]
     Indication: TYPE 2 DIABETES MELLITUS
  3. HUMALOG [Suspect]
     Dosage: UNK, PRN
     Dates: start: 20120401
  4. HUMALOG [Suspect]
     Indication: TYPE 2 DIABETES MELLITUS
     Dosage: 30 U, UNK
     Dates: start: 20120401
  5. VICTOZA [Concomitant]
     Indication: TYPE 2 DIABETES MELLITUS
  6. HUMALOG [Suspect]
     Dosage: UNK
     Dates: start: 20050101

REACTIONS (6)
  - FLUID RETENTION [None]
  - CARDIAC FAILURE CONGESTIVE [None]
  - BLOOD GLUCOSE DECREASED [None]
  - BLOOD GLUCOSE INCREASED [None]
  - CONFUSIONAL STATE [None]
  - INCORRECT DOSE ADMINISTERED [None]
